FAERS Safety Report 21232559 (Version 1)
Quarter: 2022Q3

REPORT INFORMATION
  Report Type: Spontaneous
  Country: US (occurrence: US)
  Receive Date: 20220819
  Receipt Date: 20220819
  Transmission Date: 20221027
  Serious: Yes (Other)
  Sender: FDA-Public Use
  Company Number: US-SPC-000127

PATIENT
  Age: 27 Year
  Sex: Male

DRUGS (2)
  1. METRONIDAZOLE [Suspect]
     Active Substance: METRONIDAZOLE
     Indication: Neutropenic colitis
     Route: 042
  2. CEFEPIME [Suspect]
     Active Substance: CEFEPIME HYDROCHLORIDE
     Indication: Neutropenic colitis
     Route: 042

REACTIONS (3)
  - Leukopenia [Unknown]
  - Neutropenia [Unknown]
  - Product use in unapproved indication [Unknown]
